FAERS Safety Report 17812739 (Version 1)
Quarter: 2020Q2

REPORT INFORMATION
  Report Type: Spontaneous
  Country: US (occurrence: US)
  Receive Date: 20200521
  Receipt Date: 20200521
  Transmission Date: 20200714
  Serious: Yes (Other)
  Sender: FDA-Public Use
  Company Number: None

PATIENT
  Age: 93 Year
  Sex: Female
  Weight: 57.15 kg

DRUGS (4)
  1. CHOLESTYRAMINE. [Suspect]
     Active Substance: CHOLESTYRAMINE
     Indication: DIARRHOEA
     Dosage: ?          QUANTITY:30 PACKET;?
     Dates: start: 20200508, end: 20200509
  2. BLOOD PRESSURE MEDICINES [Concomitant]
     Active Substance: UNSPECIFIED INGREDIENT
  3. BLOOD THINNERS [Concomitant]
     Active Substance: UNSPECIFIED INGREDIENT
  4. VITAMINS [Concomitant]
     Active Substance: VITAMINS

REACTIONS (3)
  - Mouth swelling [None]
  - Oral pain [None]
  - Dyspnoea [None]
